FAERS Safety Report 23292401 (Version 5)
Quarter: 2025Q3

REPORT INFORMATION
  Report Type: Spontaneous
  Country: US (occurrence: US)
  Receive Date: 20231213
  Receipt Date: 20250828
  Transmission Date: 20251020
  Serious: Yes (Disabling, Other)
  Sender: AMGEN
  Company Number: US-HORIZON THERAPEUTICS-HZN-2023-010431

PATIENT
  Age: 47 Year
  Sex: Female

DRUGS (27)
  1. TEPEZZA [Suspect]
     Active Substance: TEPROTUMUMAB-TRBW
     Indication: Endocrine ophthalmopathy
     Dosage: 700 MILLIGRAM, Q3WK (10MG/KG) (FIRST INFUSION)
     Route: 040
     Dates: start: 20210909
  2. TEPEZZA [Suspect]
     Active Substance: TEPROTUMUMAB-TRBW
     Indication: Graves^ disease
     Dosage: 1400 MILLIGRAM, Q3WK (20MG/KG, SECOND INFUSION)
     Route: 040
     Dates: start: 20210930
  3. TEPEZZA [Suspect]
     Active Substance: TEPROTUMUMAB-TRBW
     Dosage: 1400 MILLIGRAM, Q3WK (20MG/KG, THIRD INFUSION)
     Route: 040
     Dates: start: 20211021
  4. TEPEZZA [Suspect]
     Active Substance: TEPROTUMUMAB-TRBW
     Dosage: 1400 MILLIGRAM, Q3WK (20MG/KG, FOURTH DOSE)
     Route: 040
     Dates: start: 20211111
  5. TEPEZZA [Suspect]
     Active Substance: TEPROTUMUMAB-TRBW
     Dosage: 1400 MILLIGRAM, Q3WK (20MG/KG, FIFTH INFUSION)
     Route: 040
     Dates: start: 20211202
  6. TEPEZZA [Suspect]
     Active Substance: TEPROTUMUMAB-TRBW
     Dosage: 1400 MILLIGRAM, Q3WK (20MG/KG, SIXTH INFUSION)
     Route: 040
     Dates: start: 20211223
  7. TEPEZZA [Suspect]
     Active Substance: TEPROTUMUMAB-TRBW
     Dosage: 1400 MILLIGRAM, Q3WK (20MG/KG, SEVENTH INFUSION)
     Route: 040
     Dates: start: 20220113
  8. TEPEZZA [Suspect]
     Active Substance: TEPROTUMUMAB-TRBW
     Dosage: 1400 MILLIGRAM, Q3WK  (20MG/KG, EIGHTH INFUSION)
     Route: 040
     Dates: start: 20220203, end: 20220203
  9. FAMOTIDINE [Concomitant]
     Active Substance: FAMOTIDINE
     Dates: start: 20220627
  10. SUMATRIPTAN [Concomitant]
     Active Substance: SUMATRIPTAN
     Dates: start: 20151119, end: 20230503
  11. BETAMETHASONE [Concomitant]
     Active Substance: BETAMETHASONE
     Dates: start: 20151119, end: 20230503
  12. TRIMETHOBENZAMIDE [Concomitant]
     Active Substance: TRIMETHOBENZAMIDE
     Dates: start: 20191122, end: 20230503
  13. LIDOCAINE [Concomitant]
     Active Substance: LIDOCAINE
     Dates: start: 20201118, end: 20230503
  14. POTASSIUM CHLORIDE [Concomitant]
     Active Substance: POTASSIUM CHLORIDE
     Dates: start: 20200505, end: 20230503
  15. OXYCODONE [Concomitant]
     Active Substance: OXYCODONE
     Dates: start: 20210629, end: 20230503
  16. LIDOCAINE HYDROCHLORIDE [Concomitant]
     Active Substance: LIDOCAINE HYDROCHLORIDE
     Dates: start: 20191023, end: 20230419
  17. Polydex [Concomitant]
     Dates: start: 20211014, end: 20230419
  18. ISOTRETINOIN [Concomitant]
     Active Substance: ISOTRETINOIN
     Dates: start: 20220307, end: 20230419
  19. MESALAMINE [Concomitant]
     Active Substance: MESALAMINE
     Dates: start: 20220627, end: 20230503
  20. PROPRANOLOL [Concomitant]
     Active Substance: PROPRANOLOL HYDROCHLORIDE
     Dates: start: 20221003, end: 20230503
  21. BUDESONIDE [Concomitant]
     Active Substance: BUDESONIDE
     Dates: start: 20221227, end: 20230419
  22. VALACYCLOVIR [Concomitant]
     Active Substance: VALACYCLOVIR HYDROCHLORIDE
  23. PREDNISOLONE [Concomitant]
     Active Substance: PREDNISOLONE
     Route: 065
  24. CYCLOPENTOLATE [Concomitant]
     Active Substance: CYCLOPENTOLATE
     Dosage: UNK UNK, BID
     Route: 065
  25. MAXITROL [Concomitant]
     Active Substance: DEXAMETHASONE\NEOMYCIN SULFATE\POLYMYXIN B SULFATE
     Dosage: UNK UNK, BID (APPLY TWICE DAILY)
  26. ZERVIATE [Concomitant]
     Active Substance: CETIRIZINE HYDROCHLORIDE
  27. PATADAY [Concomitant]
     Active Substance: OLOPATADINE HYDROCHLORIDE

REACTIONS (14)
  - Disability [Not Recovered/Not Resolved]
  - Physical disability [Not Recovered/Not Resolved]
  - Deafness [Not Recovered/Not Resolved]
  - Concomitant disease aggravated [Not Recovered/Not Resolved]
  - Injury [Not Recovered/Not Resolved]
  - Pain [Not Recovered/Not Resolved]
  - Anxiety [Not Recovered/Not Resolved]
  - Discomfort [Unknown]
  - Emotional distress [Not Recovered/Not Resolved]
  - Impaired quality of life [Not Recovered/Not Resolved]
  - Economic problem [Not Recovered/Not Resolved]
  - Product quality issue [Unknown]
  - Tinnitus [Not Recovered/Not Resolved]
  - Muscle spasms [Unknown]

NARRATIVE: CASE EVENT DATE: 20210101
